FAERS Safety Report 7559745-7 (Version None)
Quarter: 2011Q2

REPORT INFORMATION
  Report Type: 
  Country: None (occurrence: None)
  Receive Date: 20110621
  Receipt Date: 20110608
  Transmission Date: 20111010
  Serious: Yes (Other)
  Sender: FDA-Public Use
  Company Number: US-ACTELION-A-NJ2011-49338

PATIENT

DRUGS (3)
  1. TRACLEER [Suspect]
     Indication: PULMONARY ARTERIAL HYPERTENSION
     Dosage: UNK
     Route: 048
     Dates: start: 20110101, end: 20110101
  2. TRACLEER [Suspect]
     Dosage: UNK
     Route: 048
     Dates: start: 20100312, end: 20110101
  3. REVATIO [Concomitant]

REACTIONS (2)
  - DYSKINESIA [None]
  - HALLUCINATION [None]
